FAERS Safety Report 5388491-3 (Version None)
Quarter: 2007Q3

REPORT INFORMATION
  Report Type: 
  Country: None (occurrence: None)
  Receive Date: 20070716
  Receipt Date: 20070704
  Transmission Date: 20080115
  Serious: Yes (Death)
  Sender: FDA-Public Use
  Company Number: GB-PFIZER INC-2006109029

PATIENT
  Sex: Male
  Weight: 65.2 kg

DRUGS (1)
  1. SU-011,248 [Suspect]
     Indication: RENAL CELL CARCINOMA STAGE UNSPECIFIED
     Route: 048
     Dates: start: 20060719, end: 20060814

REACTIONS (4)
  - ANOREXIA [None]
  - DEATH [None]
  - DIARRHOEA [None]
  - FATIGUE [None]
